FAERS Safety Report 8470373-1 (Version None)
Quarter: 2012Q2

REPORT INFORMATION
  Report Type: 
  Country: None (occurrence: None)
  Receive Date: 20120627
  Receipt Date: 20120613
  Transmission Date: 20120825
  Serious: Yes (Congenital Anomaly)
  Sender: FDA-Public Use
  Company Number: DE-MYLANLABS-2012S1011948

PATIENT
  Age: 0 Year
  Sex: Female
  Weight: 3.25 kg

DRUGS (3)
  1. LAMOTRIGINE [Suspect]
     Dosage: 0.5 [MG/D ]
     Route: 064
     Dates: start: 20110414, end: 20120106
  2. LEVOTHYROXINE SODIUM [Concomitant]
     Route: 064
     Dates: start: 20110414, end: 20120106
  3. CLONAZEPAM [Suspect]
     Dosage: 75 [MG/D ]
     Route: 064
     Dates: start: 20110414, end: 20120106

REACTIONS (3)
  - MATERNAL EXPOSURE DURING PREGNANCY [None]
  - VENTRICULAR SEPTAL DEFECT [None]
  - ATRIAL SEPTAL DEFECT [None]
